FAERS Safety Report 23212447 (Version 4)
Quarter: 2024Q1

REPORT INFORMATION
  Report Type: Spontaneous
  Country: US (occurrence: US)
  Receive Date: 20231121
  Receipt Date: 20240212
  Transmission Date: 20240410
  Serious: Yes (Death)
  Sender: FDA-Public Use
  Company Number: US-PFIZER INC-202200458111

PATIENT
  Age: 86 Year
  Sex: Male
  Weight: 97.98 kg

DRUGS (2)
  1. VYNDAMAX [Suspect]
     Active Substance: TAFAMIDIS
     Indication: Amyloidosis
     Dosage: 61 MG, 1X/DAY
     Route: 048
  2. VYNDAMAX [Suspect]
     Active Substance: TAFAMIDIS
     Dosage: UNK, 1X/DAY
     Route: 048
     Dates: start: 2018

REACTIONS (3)
  - Cardiac failure [Fatal]
  - Product administration interrupted [Unknown]
  - Body height decreased [Unknown]

NARRATIVE: CASE EVENT DATE: 20231101
